FAERS Safety Report 7951781-1 (Version None)
Quarter: 2011Q4

REPORT INFORMATION
  Report Type: 
  Country: None (occurrence: None)
  Receive Date: 20111201
  Receipt Date: 20111126
  Transmission Date: 20120403
  Serious: No
  Sender: FDA-Public Use
  Company Number: NZ-JNJFOC-20090504641

PATIENT
  Sex: Female
  Weight: 71 kg

DRUGS (45)
  1. GOLIMUMAB [Suspect]
     Route: 058
     Dates: start: 20081022
  2. GOLIMUMAB [Suspect]
     Route: 058
     Dates: start: 20090404
  3. GOLIMUMAB [Suspect]
     Route: 058
     Dates: start: 20070703
  4. GOLIMUMAB [Suspect]
     Route: 058
     Dates: start: 20071015
  5. GOLIMUMAB [Suspect]
     Route: 058
     Dates: start: 20080828
  6. GOLIMUMAB [Suspect]
     Route: 058
     Dates: start: 20081116
  7. GOLIMUMAB [Suspect]
     Route: 058
     Dates: start: 20060919
  8. GOLIMUMAB [Suspect]
     Route: 058
     Dates: start: 20061020
  9. GOLIMUMAB [Suspect]
     Route: 058
     Dates: start: 20061110
  10. GOLIMUMAB [Suspect]
     Route: 058
     Dates: start: 20060627
  11. FOLIC ACID [Concomitant]
     Route: 048
     Dates: start: 19880901
  12. MULTIVITE [Concomitant]
     Route: 048
     Dates: start: 20010606
  13. OMEPRAZOLE [Concomitant]
     Route: 048
     Dates: start: 20040707
  14. SIMVASTATIN [Concomitant]
     Route: 048
     Dates: start: 20080508
  15. GOLIMUMAB [Suspect]
     Route: 058
     Dates: start: 20070824
  16. GOLIMUMAB [Suspect]
     Route: 058
     Dates: start: 20090106
  17. GOLIMUMAB [Suspect]
     Route: 058
     Dates: start: 20090306
  18. GOLIMUMAB [Suspect]
     Route: 058
     Dates: start: 20070109
  19. GOLIMUMAB [Suspect]
     Route: 058
     Dates: start: 20070227
  20. GOLIMUMAB [Suspect]
     Route: 058
     Dates: start: 20080207
  21. GOLIMUMAB [Suspect]
     Route: 058
     Dates: start: 20080307
  22. GOLIMUMAB [Suspect]
     Route: 058
     Dates: start: 20080804
  23. LEVOTHYROXINE SODIUM [Concomitant]
     Route: 048
     Dates: start: 19740101
  24. GOLIMUMAB [Suspect]
     Indication: RHEUMATOID ARTHRITIS
     Route: 058
     Dates: start: 20061212
  25. GOLIMUMAB [Suspect]
     Route: 058
     Dates: start: 20070501
  26. GOLIMUMAB [Suspect]
     Route: 058
     Dates: start: 20070726
  27. GOLIMUMAB [Suspect]
     Route: 058
     Dates: start: 20070918
  28. GOLIMUMAB [Suspect]
     Route: 058
     Dates: start: 20080405
  29. GOLIMUMAB [Suspect]
     Route: 058
     Dates: start: 20081211
  30. METHOTREXATE [Concomitant]
     Route: 048
     Dates: start: 19880901
  31. DICLOFENAC SODIUM SR [Concomitant]
  32. ACETAMINOPHEN [Concomitant]
     Route: 048
  33. GOLIMUMAB [Suspect]
     Route: 058
     Dates: start: 20080108
  34. GOLIMUMAB [Suspect]
     Route: 058
     Dates: start: 20080505
  35. GOLIMUMAB [Suspect]
     Route: 058
     Dates: start: 20080703
  36. GOLIMUMAB [Suspect]
     Route: 058
     Dates: start: 20080929
  37. GOLIMUMAB [Suspect]
     Route: 058
     Dates: start: 20070529
  38. GOLIMUMAB [Suspect]
     Route: 058
     Dates: start: 20071211
  39. GOLIMUMAB [Suspect]
     Route: 058
     Dates: start: 20080605
  40. GOLIMUMAB [Suspect]
     Route: 058
     Dates: start: 20090505
  41. GOLIMUMAB [Suspect]
     Route: 058
     Dates: start: 20070403
  42. GOLIMUMAB [Suspect]
     Route: 058
     Dates: start: 20090206
  43. GOLIMUMAB [Suspect]
     Route: 058
     Dates: start: 20060822
  44. GOLIMUMAB [Suspect]
     Route: 058
     Dates: start: 20060720
  45. ETIDRONATE DISODIUM [Concomitant]
     Route: 048

REACTIONS (1)
  - BASAL CELL CARCINOMA [None]
